FAERS Safety Report 18875566 (Version 1)
Quarter: 2021Q1

REPORT INFORMATION
  Report Type: Spontaneous
  Country: AU (occurrence: AU)
  Receive Date: 20210210
  Receipt Date: 20210210
  Transmission Date: 20210420
  Serious: Yes (Other)
  Sender: FDA-Public Use
  Company Number: AU-PFIZER INC-2021116739

PATIENT
  Age: 61 Year
  Sex: Male

DRUGS (4)
  1. TAMOXIFEN [Suspect]
     Active Substance: TAMOXIFEN
     Dosage: UNK
  2. ATORVASTATIN CALCIUM. [Suspect]
     Active Substance: ATORVASTATIN CALCIUM
     Dosage: UNK
  3. CANDESARTAN. [Suspect]
     Active Substance: CANDESARTAN
     Dosage: UNK
  4. METOPROLOL. [Suspect]
     Active Substance: METOPROLOL
     Dosage: UNK

REACTIONS (4)
  - Myocardial infarction [Recovered/Resolved]
  - Pain in extremity [Recovered/Resolved]
  - Thrombosis [Recovered/Resolved]
  - Supraventricular tachycardia [Recovered/Resolved]
